FAERS Safety Report 4871678-3 (Version None)
Quarter: 2006Q1

REPORT INFORMATION
  Report Type: 
  Country: None (occurrence: None)
  Receive Date: 20060104
  Receipt Date: 20051212
  Transmission Date: 20060701
  Serious: Yes (Death)
  Sender: FDA-Public Use
  Company Number: US-BRISTOL-MYERS SQUIBB COMPANY-13213483

PATIENT
  Age: 75 Year

DRUGS (1)
  1. MEGACE [Suspect]

REACTIONS (1)
  - MALIGNANT NEOPLASM PROGRESSION [None]
